FAERS Safety Report 6369689-4 (Version None)
Quarter: 2009Q3

REPORT INFORMATION
  Report Type: 
  Country: None (occurrence: None)
  Receive Date: 20090923
  Receipt Date: 20090911
  Transmission Date: 20100115
  Serious: Yes (Other)
  Sender: FDA-Public Use
  Company Number: US-PFIZER INC-2004112636

PATIENT
  Sex: Female
  Weight: 82 kg

DRUGS (3)
  1. PROVERA [Suspect]
     Indication: HORMONE REPLACEMENT THERAPY
     Dosage: UNK
     Route: 048
     Dates: start: 19930101, end: 19960101
  2. PREMARIN [Suspect]
     Indication: HORMONE REPLACEMENT THERAPY
     Dosage: UNK
     Route: 065
     Dates: start: 19930101, end: 19960101
  3. ORAL CONTRACEPTIVE NOS [Suspect]
     Indication: HORMONE REPLACEMENT THERAPY

REACTIONS (3)
  - ARTHRITIS [None]
  - BREAST CANCER FEMALE [None]
  - MYOCARDIAL INFARCTION [None]
